FAERS Safety Report 19292071 (Version 3)
Quarter: 2021Q2

REPORT INFORMATION
  Report Type: Spontaneous
  Country: JP (occurrence: JP)
  Receive Date: 20210524
  Receipt Date: 20210613
  Transmission Date: 20210717
  Serious: Yes (Hospitalization, Other)
  Sender: FDA-Public Use
  Company Number: JP-B.I. PHARMACEUTICALS,INC./RIDGEFIELD-2021-BI-103466

PATIENT
  Age: 94 Year
  Sex: Female

DRUGS (1)
  1. PRAZAXA [Suspect]
     Active Substance: DABIGATRAN ETEXILATE MESYLATE
     Indication: ATRIAL FIBRILLATION
     Route: 048
     Dates: end: 20210510

REACTIONS (3)
  - Fall [Recovering/Resolving]
  - Pelvic haemorrhage [Recovering/Resolving]
  - Pelvic fracture [Recovering/Resolving]

NARRATIVE: CASE EVENT DATE: 20210510
